FAERS Safety Report 8391860-0 (Version None)
Quarter: 2012Q2

REPORT INFORMATION
  Report Type: 
  Country: None (occurrence: None)
  Receive Date: 20120529
  Receipt Date: 20120522
  Transmission Date: 20120825
  Serious: Yes (Hospitalization)
  Sender: FDA-Public Use
  Company Number: US-GLAXOSMITHKLINE-A0943034A

PATIENT
  Age: 17 Year
  Sex: Female

DRUGS (4)
  1. ACNE MEDICATION [Concomitant]
     Route: 061
  2. ADVAIR DISKUS 100/50 [Suspect]
     Indication: ASTHMA
     Dosage: 1PUFF TWICE PER DAY
     Route: 055
     Dates: start: 20060101, end: 20091224
  3. SOMA [Concomitant]
  4. UNSPECIFIED INHALER [Concomitant]

REACTIONS (7)
  - RESPIRATORY ARREST [None]
  - NERVOUS SYSTEM DISORDER [None]
  - HYPOXIC-ISCHAEMIC ENCEPHALOPATHY [None]
  - ANAPHYLACTIC REACTION [None]
  - ASTHMA [None]
  - CARDIAC ARREST [None]
  - CONVULSION [None]
